FAERS Safety Report 9552262 (Version 3)
Quarter: 2013Q4

REPORT INFORMATION
  Report Type: Spontaneous
  Country: GR (occurrence: GR)
  Receive Date: 20130925
  Receipt Date: 20131218
  Transmission Date: 20140711
  Serious: Yes (Death, Hospitalization, Other)
  Sender: FDA-Public Use
  Company Number: GR-MILLENNIUM PHARMACEUTICALS, INC.-2013JNJ000319

PATIENT
  Sex: 0

DRUGS (17)
  1. VELCADE [Suspect]
     Indication: PLASMA CELL MYELOMA
     Dosage: 1.3 MG/M2, UNK
     Route: 058
     Dates: start: 20121127, end: 20130419
  2. DEXAMETHASONE [Suspect]
     Indication: PLASMA CELL MYELOMA
     Dosage: 20 MG, UNK
     Route: 048
     Dates: start: 20121127, end: 20130420
  3. T4 [Concomitant]
     Indication: HYPOTHYROIDISM
     Dosage: UNK
     Dates: start: 20130523
  4. PENRAZOL                           /00661201/ [Concomitant]
     Dosage: UNK
     Dates: start: 20121120
  5. SOTALOL [Concomitant]
     Dosage: UNK
     Dates: start: 201305
  6. LYRICA [Concomitant]
     Indication: PERIPHERAL SENSORY NEUROPATHY
     Dosage: UNK
     Dates: start: 20130117
  7. ALOPERIDIN                         /00027401/ [Concomitant]
     Dosage: UNK
  8. ALOPERIDIN                         /00027401/ [Concomitant]
     Dosage: UNK
     Dates: start: 20130603
  9. CALCIORAL                          /00108001/ [Concomitant]
     Dosage: UNK
     Dates: start: 20130609
  10. VALTREX [Concomitant]
     Indication: PROPHYLAXIS
     Dosage: UNK
     Dates: start: 20090623
  11. BACTRIMEL [Concomitant]
     Indication: INFECTION PROPHYLAXIS
     Dosage: UNK
     Dates: start: 20090623
  12. DUROGESIC [Concomitant]
     Indication: BONE PAIN
     Dosage: UNK
     Dates: start: 20130121
  13. ABSTRAL [Concomitant]
     Indication: BONE PAIN
     Dosage: UNK
     Dates: start: 20130121
  14. TRAMAL [Concomitant]
     Indication: BONE PAIN
     Dosage: UNK
     Dates: start: 20130121
  15. CYANOCOBALAMIN W/PYRIDOXINE HYDROCHLORIDE/THI [Concomitant]
     Indication: PERIPHERAL SENSORY NEUROPATHY
  16. HEPARIN SODIUM [Concomitant]
     Indication: THROMBOSIS PROPHYLAXIS
  17. OMEPRAZOLE [Concomitant]
     Indication: PROPHYLAXIS

REACTIONS (10)
  - Loss of consciousness [Fatal]
  - Hypovolaemic shock [Fatal]
  - Large intestinal haemorrhage [Recovered/Resolved]
  - Haemorrhage [Unknown]
  - Febrile neutropenia [Unknown]
  - Anaemia [Not Recovered/Not Resolved]
  - Cytomegalovirus colitis [Unknown]
  - Sepsis [Unknown]
  - Renal failure acute [Not Recovered/Not Resolved]
  - Bacteraemia [Recovered/Resolved]
